FAERS Safety Report 4298518-8 (Version None)
Quarter: 2004Q1

REPORT INFORMATION
  Report Type: 
  Country: None (occurrence: None)
  Receive Date: 20040218
  Receipt Date: 20031107
  Transmission Date: 20041129
  Serious: Yes (Hospitalization)
  Sender: FDA-Public Use
  Company Number: WAES 0311USA00843

PATIENT
  Age: 60 Year
  Sex: Male
  Weight: 75 kg

DRUGS (8)
  1. ALBUTEROL [Concomitant]
  2. ALLOPURINOL [Concomitant]
     Route: 048
  3. INTAL [Concomitant]
     Route: 055
  4. ZETIA [Suspect]
     Indication: HYPERCHOLESTEROLAEMIA
     Route: 048
     Dates: start: 20031003, end: 20031105
  5. ZETIA [Suspect]
     Indication: BLOOD CHOLESTEROL INCREASED
     Route: 048
     Dates: start: 20031003, end: 20031105
  6. PEPCID [Concomitant]
     Route: 048
  7. ADVAIR DISKUS 100/50 [Concomitant]
     Route: 055
  8. ZESTRIL [Concomitant]

REACTIONS (3)
  - NEPHROLITHIASIS [None]
  - PANCREATITIS [None]
  - PANCREATITIS ACUTE [None]
